FAERS Safety Report 6244337-2 (Version None)
Quarter: 2009Q2

REPORT INFORMATION
  Report Type: 
  Country: None (occurrence: None)
  Receive Date: 20090625
  Receipt Date: 20090619
  Transmission Date: 20091009
  Serious: Yes (Death, Hospitalization)
  Sender: FDA-Public Use
  Company Number: DE-ROCHE-560363

PATIENT
  Age: 71 Year
  Sex: Female
  Weight: 81 kg

DRUGS (2)
  1. CAPECITABINE [Suspect]
     Route: 048
     Dates: start: 20071011
  2. CAPECITABINE [Suspect]
     Dosage: INTERRUPTED.
     Route: 048
     Dates: end: 20080513

REACTIONS (2)
  - ANAEMIA [None]
  - NEOPLASM PROGRESSION [None]
